FAERS Safety Report 9597328 (Version 1)
Quarter: 2013Q4

REPORT INFORMATION
  Report Type: Report from Study
  Country: US (occurrence: US)
  Receive Date: 20131004
  Receipt Date: 20131004
  Transmission Date: 20140711
  Serious: Yes (Other)
  Sender: FDA-Public Use
  Company Number: US-ROCHE-1283336

PATIENT
  Sex: Female

DRUGS (1)
  1. XELODA [Suspect]
     Indication: BREAST CANCER METASTATIC
     Dosage: 14 DAYS ON , 7 DAYS OFF
     Route: 048

REACTIONS (2)
  - Gastrointestinal oedema [Not Recovered/Not Resolved]
  - Abdominal pain upper [Unknown]
